FAERS Safety Report 6845397-8 (Version None)
Quarter: 2010Q3

REPORT INFORMATION
  Report Type: 
  Country: None (occurrence: None)
  Receive Date: 20100715
  Receipt Date: 20070820
  Transmission Date: 20110219
  Serious: No
  Sender: FDA-Public Use
  Company Number: US-PFIZER INC-2007069834

PATIENT
  Sex: Female
  Weight: 60.8 kg

DRUGS (6)
  1. CHANTIX [Suspect]
     Indication: SMOKING CESSATION THERAPY
     Dates: start: 20070601
  2. ALL OTHER THERAPEUTIC PRODUCTS [Concomitant]
  3. VALSARTAN [Concomitant]
  4. MONTELUKAST SODIUM [Concomitant]
  5. ZOCOR [Concomitant]
  6. DIGOXIN [Concomitant]

REACTIONS (3)
  - ABNORMAL DREAMS [None]
  - HYPERSOMNIA [None]
  - LETHARGY [None]
